FAERS Safety Report 4852875-X (Version None)
Quarter: 2005Q4

REPORT INFORMATION
  Report Type: 
  Country: None (occurrence: None)
  Receive Date: 20051214
  Receipt Date: 20040505
  Transmission Date: 20060501
  Serious: Yes (Other)
  Sender: FDA-Public Use
  Company Number: 2004UW09307

PATIENT
  Age: 78 Year
  Sex: Male
  Weight: 88.6 kg

DRUGS (9)
  1. PRILOSEC [Suspect]
     Indication: REFLUX OESOPHAGITIS
     Route: 048
     Dates: start: 19820101
  2. NEXIUM [Suspect]
     Route: 048
  3. PEPCID [Suspect]
     Route: 048
  4. PREVACID [Suspect]
     Route: 048
  5. PROTONIX [Suspect]
  6. ACIPHEX [Suspect]
  7. ZANTAC [Suspect]
  8. ANTIBIOTICS [Concomitant]
  9. VITAMINS [Concomitant]

REACTIONS (2)
  - IDIOPATHIC THROMBOCYTOPENIC PURPURA [None]
  - MYOCARDIAL INFARCTION [None]
